FAERS Safety Report 10519623 (Version 1)
Quarter: 2014Q4

REPORT INFORMATION
  Report Type: Spontaneous
  Country: US (occurrence: US)
  Receive Date: 20141015
  Receipt Date: 20141015
  Transmission Date: 20150528
  Serious: No
  Sender: FDA-Public Use
  Company Number: US-PFIZER INC-2014279821

PATIENT
  Sex: Female

DRUGS (9)
  1. CLONIDINE. [Suspect]
     Active Substance: CLONIDINE
     Dosage: 0.3 MG, 1X/DAY
  2. CLORAZEPATE [Suspect]
     Active Substance: CLORAZEPATE DIPOTASSIUM
     Dosage: 3.75 MG, 1X/DAY
  3. ADDERALL [Suspect]
     Active Substance: AMPHETAMINE ASPARTATE\AMPHETAMINE SULFATE\DEXTROAMPHETAMINE SACCHARATE\DEXTROAMPHETAMINE SULFATE
     Dosage: 30 MG, 1X/DAY
  4. CLONAZEPAM. [Suspect]
     Active Substance: CLONAZEPAM
     Dosage: 2 MG, 3X/DAY
  5. DILANTIN [Suspect]
     Active Substance: PHENYTOIN
     Dosage: 125 MG, 3X/DAY
  6. MIRALAX [Suspect]
     Active Substance: POLYETHYLENE GLYCOL 3350
     Dosage: UNK
  7. FIBRE, DIETARY [Suspect]
     Active Substance: PSYLLIUM HUSK
     Dosage: UNK
  8. ONFI [Suspect]
     Active Substance: CLOBAZAM
     Dosage: 20 MG, 2X/DAY
  9. KEPPRA [Suspect]
     Active Substance: LEVETIRACETAM
     Dosage: 2750 2X DAILY

REACTIONS (1)
  - Constipation [Unknown]
